FAERS Safety Report 8345495-6 (Version None)
Quarter: 2012Q2

REPORT INFORMATION
  Report Type: 
  Country: None (occurrence: None)
  Receive Date: 20120508
  Receipt Date: 20120504
  Transmission Date: 20120825
  Serious: Yes (Hospitalization)
  Sender: FDA-Public Use
  Company Number: US-GILEAD-2012-0054433

PATIENT
  Sex: Male

DRUGS (2)
  1. LETAIRIS [Suspect]
     Indication: PULMONARY HYPERTENSION
     Dosage: 10 MG, UNK
     Route: 048
     Dates: start: 20120127
  2. LETAIRIS [Suspect]
     Indication: PULMONARY FIBROSIS

REACTIONS (2)
  - PULMONARY HYPERTENSION [None]
  - INTERSTITIAL LUNG DISEASE [None]
